FAERS Safety Report 5906105-8 (Version None)
Quarter: 2008Q4

REPORT INFORMATION
  Report Type: 
  Country: None (occurrence: None)
  Receive Date: 20081002
  Receipt Date: 20080924
  Transmission Date: 20090506
  Serious: Yes (Disabling, Other)
  Sender: FDA-Public Use
  Company Number: PHEH2007US02905

PATIENT
  Sex: Male

DRUGS (11)
  1. AREDIA [Suspect]
  2. ZOMETA [Suspect]
  3. TESTOSTERONE [Concomitant]
  4. FLOMAX [Suspect]
  5. DITROPAN [Concomitant]
  6. VALIUM [Concomitant]
  7. COLCHICINE [Concomitant]
  8. ELAVIL [Concomitant]
  9. ZOLOFT [Concomitant]
  10. DOXYCYCLINE [Concomitant]
  11. CHEMOTHERAPEUTICS NOS [Concomitant]
     Dosage: UNK
     Dates: start: 20031201

REACTIONS (19)
  - ACTINOMYCOSIS [None]
  - ANXIETY [None]
  - BENIGN PROSTATIC HYPERPLASIA [None]
  - CHOLECYSTECTOMY [None]
  - DECREASED INTEREST [None]
  - DENTAL CARIES [None]
  - DIZZINESS [None]
  - GENERAL PHYSICAL HEALTH DETERIORATION [None]
  - GINGIVAL RECESSION [None]
  - HAEMATURIA [None]
  - HEADACHE [None]
  - IMPAIRED HEALING [None]
  - INTERVERTEBRAL DISC DISPLACEMENT [None]
  - MALIGNANT MELANOMA [None]
  - OSTEONECROSIS [None]
  - OSTEOPENIA [None]
  - PAIN [None]
  - STEM CELL TRANSPLANT [None]
  - TOOTH EXTRACTION [None]
